FAERS Safety Report 20803069 (Version 2)
Quarter: 2022Q2

REPORT INFORMATION
  Report Type: Spontaneous
  Country: US (occurrence: US)
  Receive Date: 20220509
  Receipt Date: 20220511
  Transmission Date: 20220721
  Serious: Yes (Other)
  Sender: FDA-Public Use
  Company Number: US-PFIZER INC-202200669478

PATIENT
  Age: 79 Year
  Sex: Female

DRUGS (1)
  1. PAXLOVID [Suspect]
     Active Substance: NIRMATRELVIR\RITONAVIR
     Indication: COVID-19 treatment
     Dosage: UNK
     Dates: start: 20220505

REACTIONS (4)
  - Oropharyngeal blistering [Unknown]
  - Product taste abnormal [Unknown]
  - Dysgeusia [Unknown]
  - Oropharyngeal discolouration [Unknown]

NARRATIVE: CASE EVENT DATE: 20220505
